FAERS Safety Report 14056507 (Version 3)
Quarter: 2017Q4

REPORT INFORMATION
  Report Type: Report from Study
  Country: US (occurrence: US)
  Receive Date: 20171006
  Receipt Date: 20171212
  Transmission Date: 20180321
  Serious: Yes (Hospitalization)
  Sender: FDA-Public Use
  Company Number: US-ROCHE-1998326

PATIENT
  Age: 67 Year
  Sex: Female
  Weight: 53.3 kg

DRUGS (26)
  1. TRASTUZUMAB. [Suspect]
     Active Substance: TRASTUZUMAB
     Dosage: MAINTENANCE DOSE 336 MG?DATE OF MOST RECENT DOSE PRIOR TO SERIOUS ADVERSE EVENT (SAE) ONSET: 12/SEP/
     Route: 042
     Dates: start: 20170912
  2. FENTANYL. [Concomitant]
     Active Substance: FENTANYL
     Indication: PAIN
     Dosage: 200 MCG/HRX2
     Route: 065
     Dates: start: 20170518
  3. ALPRAZOLAM. [Concomitant]
     Active Substance: ALPRAZOLAM
     Indication: ANXIETY
     Route: 048
     Dates: start: 20170815
  4. BENAZEPRIL [Concomitant]
     Active Substance: BENAZEPRIL HYDROCHLORIDE
     Indication: HYPERTENSION
     Route: 065
     Dates: start: 20170518
  5. MS CONTIN [Concomitant]
     Active Substance: MORPHINE SULFATE
     Indication: PAIN
     Route: 065
     Dates: start: 20170920
  6. OLANZAPINE. [Concomitant]
     Active Substance: OLANZAPINE
     Route: 048
  7. PRAVASTATIN. [Concomitant]
     Active Substance: PRAVASTATIN
     Route: 048
  8. K-DUR [Concomitant]
     Active Substance: POTASSIUM CHLORIDE
     Route: 048
  9. PERTUZUMAB. [Suspect]
     Active Substance: PERTUZUMAB
     Dosage: MAINTENANCE DOSE?DATE OF MOST RECENT DOSE PRIOR TO SERIOUS ADVERSE EVENT (SAE) ONSET: 12/SEP/2017
     Route: 042
     Dates: start: 20170912
  10. TRASTUZUMAB. [Suspect]
     Active Substance: TRASTUZUMAB
     Indication: GALLBLADDER CANCER
     Dosage: LOADING DOSE
     Route: 042
  11. OXYCODONE [Concomitant]
     Active Substance: OXYCODONE
     Indication: PAIN
     Dosage: AS NEEDED
     Route: 065
     Dates: start: 20170915
  12. SODIUM CHLORIDE. [Concomitant]
     Active Substance: SODIUM CHLORIDE
     Dosage: AS NEEDED.
     Route: 042
  13. MSIR [Concomitant]
     Active Substance: MORPHINE SULFATE
     Route: 048
  14. PERTUZUMAB. [Suspect]
     Active Substance: PERTUZUMAB
     Indication: GALLBLADDER CANCER
     Dosage: LOADING DOSE
     Route: 042
  15. CIPRO [Concomitant]
     Active Substance: CIPROFLOXACIN HYDROCHLORIDE
     Route: 048
  16. PANTOPRAZOLE [Concomitant]
     Active Substance: PANTOPRAZOLE
     Route: 042
  17. SODIUM CHLORIDE. [Concomitant]
     Active Substance: SODIUM CHLORIDE
     Dosage: AS NEEDED.
     Route: 042
  18. ZINC SULFATE [Concomitant]
     Active Substance: ZINC SULFATE\ZINC SULFATE ANHYDROUS
     Route: 065
     Dates: start: 20170913
  19. LEVOTHYROXINE. [Concomitant]
     Active Substance: LEVOTHYROXINE
     Indication: HYPOTHYROIDISM
     Route: 065
     Dates: start: 20170518
  20. METOCHLOPRAMIDE [Concomitant]
     Active Substance: METOCLOPRAMIDE HYDROCHLORIDE
     Indication: NAUSEA
     Route: 065
     Dates: start: 20170518
  21. SENNA/DOCUSATE SODIUM [Concomitant]
     Active Substance: DOCUSATE SODIUM\SENNOSIDES
     Dosage: AS NEEDED.
     Route: 065
  22. METFORMIN [Concomitant]
     Active Substance: METFORMIN HYDROCHLORIDE
     Indication: DIABETES MELLITUS
     Route: 065
     Dates: start: 20170518
  23. METOCHLOPRAMIDE [Concomitant]
     Active Substance: METOCLOPRAMIDE HYDROCHLORIDE
     Indication: VOMITING
  24. SODIUM CHLORIDE. [Concomitant]
     Active Substance: SODIUM CHLORIDE
     Dosage: AS NEEDED.
     Route: 042
  25. SODIUM CHLORIDE. [Concomitant]
     Active Substance: SODIUM CHLORIDE
     Dosage: AS NEEDED.
     Route: 042
  26. LIDODERM [Concomitant]
     Active Substance: LIDOCAINE
     Dosage: PLACE 2 PATCHES ON THE SKIN DAILY. REMOVE AND DISCARD PATCH WITHIN 12 HOURS OR AS DIRECTED BY MD. RE
     Route: 065

REACTIONS (2)
  - Fall [Unknown]
  - Vomiting [Recovering/Resolving]

NARRATIVE: CASE EVENT DATE: 20170912
